FAERS Safety Report 4704988-0 (Version None)
Quarter: 2005Q3

REPORT INFORMATION
  Report Type: 
  Country: None (occurrence: None)
  Receive Date: 20050701
  Receipt Date: 20050620
  Transmission Date: 20060218
  Serious: Yes (Death, Hospitalization)
  Sender: FDA-Public Use
  Company Number: FR-BRISTOL-MYERS SQUIBB COMPANY-13017512

PATIENT
  Age: 45 Year
  Sex: Male

DRUGS (5)
  1. AZACTAM [Suspect]
     Route: 042
     Dates: start: 20050517, end: 20050526
  2. EUPANTOL [Suspect]
     Dates: start: 20050408, end: 20050602
  3. ZYVOXID [Suspect]
     Route: 042
     Dates: start: 20050408, end: 20050602
  4. VANCOMYCIN [Suspect]
     Route: 042
     Dates: start: 20050408, end: 20050602
  5. CANCIDAS [Concomitant]
     Dosage: DATES OF ADMINISTRATION: 08-APR-2005 TO 13-APR-2005, 02-MAY-2005 TO 16-MAY-2005.
     Route: 042
     Dates: start: 20050408, end: 20050516

REACTIONS (6)
  - CARNITINE DECREASED [None]
  - HAEMORRHAGE [None]
  - HEPATIC FAILURE [None]
  - HEPATITIS FULMINANT [None]
  - LACTIC ACIDOSIS [None]
  - SHOCK HAEMORRHAGIC [None]
